FAERS Safety Report 5545305-6 (Version None)
Quarter: 2007Q4

REPORT INFORMATION
  Report Type: 
  Country: None (occurrence: None)
  Receive Date: 20071211
  Receipt Date: 20071203
  Transmission Date: 20080405
  Serious: Yes (Other)
  Sender: FDA-Public Use
  Company Number: PHBS2007RU15515

PATIENT
  Age: 75 Year
  Sex: Female

DRUGS (5)
  1. MIACALCIN [Suspect]
     Dosage: 1 DF, Q48H
     Route: 065
  2. CAD3 FORTE NYCOMED [Concomitant]
     Indication: OSTEOPOROSIS
     Dosage: 2 DF, QD
  3. MERCAZOLE [Concomitant]
  4. THYROZOL [Concomitant]
  5. EUTHYROX [Concomitant]
     Indication: GOITRE

REACTIONS (4)
  - BLOOD PRESSURE SYSTOLIC INCREASED [None]
  - CARDIAC DISORDER [None]
  - MUSCLE TIGHTNESS [None]
  - TACHYCARDIA [None]
